FAERS Safety Report 17550547 (Version 1)
Quarter: 2020Q1

REPORT INFORMATION
  Report Type: Spontaneous
  Country: US (occurrence: US)
  Receive Date: 20200317
  Receipt Date: 20200317
  Transmission Date: 20200409
  Serious: Yes (Hospitalization)
  Sender: FDA-Public Use
  Company Number: None

PATIENT
  Age: 59 Year
  Sex: Male

DRUGS (7)
  1. MYCOPHENOLATE [Concomitant]
     Active Substance: MYCOPHENOLIC ACID
  2. PREDNISONE. [Concomitant]
     Active Substance: PREDNISONE
  3. SMZ-TMP [Concomitant]
     Active Substance: SULFAMETHOXAZOLE\TRIMETHOPRIM
  4. TACROLIMUS. [Concomitant]
     Active Substance: TACROLIMUS
  5. SILDENAFIL. [Suspect]
     Active Substance: SILDENAFIL
     Indication: LIVER TRANSPLANT
     Route: 048
  6. ASPIRIN. [Concomitant]
     Active Substance: ASPIRIN
  7. VALGANCICLOV [Concomitant]

REACTIONS (2)
  - Renal transplant [None]
  - Liver transplant [None]

NARRATIVE: CASE EVENT DATE: 20200311
